FAERS Safety Report 26009272 (Version 2)
Quarter: 2025Q4

REPORT INFORMATION
  Report Type: Spontaneous
  Country: US (occurrence: US)
  Receive Date: 20251107
  Receipt Date: 20251120
  Transmission Date: 20260118
  Serious: Yes (Life-Threatening, Hospitalization, Other)
  Sender: DR REDDYS
  Company Number: US-DRL-USA-USA/2025/10/016492

PATIENT
  Age: 60 Year
  Sex: Female

DRUGS (11)
  1. METOPROLOL [Suspect]
     Active Substance: METOPROLOL
     Indication: Product used for unknown indication
     Dosage: EMPTY PRESCRIPTION BOTTLES
  2. VENLAFAXINE [Suspect]
     Active Substance: VENLAFAXINE HYDROCHLORIDE
     Indication: Product used for unknown indication
     Dosage: EMPTY PRESCRIPTION BOTTLES
  3. PREGABALIN [Suspect]
     Active Substance: PREGABALIN
     Indication: Product used for unknown indication
  4. OMEPRAZOLE [Suspect]
     Active Substance: OMEPRAZOLE
     Indication: Product used for unknown indication
     Dosage: EMPTY PRESCRIPTION BOTTLES
  5. ONDANSETRON [Suspect]
     Active Substance: ONDANSETRON
     Indication: Product used for unknown indication
  6. LEVOTHYROXINE [Suspect]
     Active Substance: LEVOTHYROXINE
     Indication: Product used for unknown indication
  7. DIPHENHYDRAMINE [Suspect]
     Active Substance: DIPHENHYDRAMINE
     Indication: Product used for unknown indication
     Dosage: EMPTY PRESCRIPTION BOTTLES
  8. CLONAZEPAM [Suspect]
     Active Substance: CLONAZEPAM
     Indication: Product used for unknown indication
     Dosage: EMPTY PRESCRIPTION BOTTLES
  9. LISINOPRIL [Suspect]
     Active Substance: LISINOPRIL
     Indication: Product used for unknown indication
     Dosage: EMPTY PRESCRIPTION BOTTLES
  10. TRAZODONE [Suspect]
     Active Substance: TRAZODONE HYDROCHLORIDE
     Indication: Product used for unknown indication
  11. ROSUVASTATIN [Suspect]
     Active Substance: ROSUVASTATIN
     Indication: Product used for unknown indication

REACTIONS (9)
  - Cardio-respiratory arrest [Recovering/Resolving]
  - Cardiogenic shock [Recovering/Resolving]
  - Intentional overdose [Recovering/Resolving]
  - Ventricular tachycardia [Recovering/Resolving]
  - Intestinal ischaemia [Recovering/Resolving]
  - Pneumonia aspiration [Recovering/Resolving]
  - Acute kidney injury [Recovering/Resolving]
  - Ischaemic hepatitis [Recovering/Resolving]
  - Depressed level of consciousness [Recovering/Resolving]
